FAERS Safety Report 4776037-X (Version None)
Quarter: 2005Q3

REPORT INFORMATION
  Report Type: 
  Country: None (occurrence: None)
  Receive Date: 20050914
  Receipt Date: 20050301
  Transmission Date: 20060218
  Serious: Yes (Hospitalization)
  Sender: FDA-Public Use
  Company Number: 163-20785-05030026

PATIENT
  Age: 44 Year
  Sex: Male
  Weight: 82.5547 kg

DRUGS (4)
  1. THALOMID [Suspect]
     Indication: COLON CANCER
     Dosage: 300 MG, QD, ORAL
     Route: 048
     Dates: start: 20041220, end: 20050224
  2. TRICOR (FENOFIBRATE) (UNKNOWN) [Concomitant]
  3. PROTONIX (PANTOPRAZOLE) (UNKNOWN) [Concomitant]
  4. ASPIRIN [Concomitant]

REACTIONS (1)
  - THROMBOSIS [None]
